FAERS Safety Report 26213186 (Version 2)
Quarter: 2025Q4

REPORT INFORMATION
  Report Type: Report from Study
  Country: JP (occurrence: JP)
  Receive Date: 20251230
  Receipt Date: 20251231
  Transmission Date: 20260117
  Serious: Yes (Hospitalization, Other)
  Sender: BAUSCH AND LOMB
  Company Number: JP-ONO-2025JP023109

PATIENT
  Age: 49 Year
  Sex: Male

DRUGS (9)
  1. DEMSER [Suspect]
     Active Substance: METYROSINE
     Indication: Blood catecholamines increased
     Dosage: 250 MG, EVERYDAY
     Route: 048
     Dates: start: 20241116, end: 20250608
  2. DEMSER [Suspect]
     Active Substance: METYROSINE
     Dosage: 250 MG, Q12H
     Route: 048
     Dates: start: 20250609, end: 20251026
  3. DEMSER [Suspect]
     Active Substance: METYROSINE
     Dosage: 250 MG, Q8H
     Route: 048
     Dates: start: 20251027
  4. LOXOPROFEN [Concomitant]
     Active Substance: LOXOPROFEN
     Indication: Phaeochromocytoma
     Dosage: UNK, PRN
     Route: 065
  5. ACETAMINOPHEN [Concomitant]
     Active Substance: ACETAMINOPHEN
     Indication: Phaeochromocytoma
     Dosage: UNK, PRN
     Route: 065
  6. DOVATO [Concomitant]
     Active Substance: DOLUTEGRAVIR SODIUM\LAMIVUDINE
     Indication: Product used for unknown indication
     Dosage: UNK
     Route: 065
  7. DOXAZOSIN [Concomitant]
     Active Substance: DOXAZOSIN MESYLATE
     Indication: Phaeochromocytoma
     Dosage: UNK
     Route: 065
  8. SANDOSTATIN LAR DEPOT [Concomitant]
     Active Substance: OCTREOTIDE ACETATE
     Indication: Phaeochromocytoma
     Dosage: UNK
     Route: 065
  9. VOLTAREN [Concomitant]
     Active Substance: DICLOFENAC SODIUM
     Indication: Phaeochromocytoma
     Dosage: UNK
     Route: 065

REACTIONS (1)
  - Pulmonary embolism [Recovering/Resolving]

NARRATIVE: CASE EVENT DATE: 20251005
